FAERS Safety Report 7616677-3 (Version None)
Quarter: 2011Q3

REPORT INFORMATION
  Report Type: 
  Country: None (occurrence: None)
  Receive Date: 20110717
  Receipt Date: 20110705
  Transmission Date: 20111222
  Serious: Yes (Hospitalization)
  Sender: FDA-Public Use
  Company Number: PHHY2011US59908

PATIENT
  Sex: Male

DRUGS (7)
  1. URSODIOL [Concomitant]
     Dosage: 250 MG, BID
     Route: 048
     Dates: start: 20080222, end: 20080504
  2. EXJADE [Suspect]
     Indication: BLOOD IRON INCREASED
     Dosage: 500 MG, TID
     Route: 048
     Dates: start: 20080401, end: 20080410
  3. ACYCLOVIR [Concomitant]
     Dosage: 800 MG, BID
     Route: 048
     Dates: start: 20080205, end: 20080506
  4. BACTRIUM DS [Concomitant]
     Dosage: UNK UKN, UNK
     Route: 048
  5. SPIRIVA [Concomitant]
     Dosage: UNK UKN, UNK
     Route: 048
  6. ADVAIR DISKUS 100/50 [Concomitant]
     Dosage: UNK UKN, BID
  7. ALBUTEROL SULFATE AUTOHALER [Concomitant]
     Dosage: UNK UKN, UNK
     Route: 048

REACTIONS (5)
  - VASCULITIS [None]
  - THROMBOCYTOPENIA [None]
  - LUNG INFILTRATION [None]
  - ACUTE MYELOID LEUKAEMIA [None]
  - FEBRILE NEUTROPENIA [None]
